FAERS Safety Report 14137667 (Version 1)
Quarter: 2017Q4

REPORT INFORMATION
  Report Type: Spontaneous
  Country: US (occurrence: US)
  Receive Date: 20171027
  Receipt Date: 20171027
  Transmission Date: 20180321
  Serious: Yes (Other)
  Sender: FDA-Public Use
  Company Number: US-BAYER-2017-204965

PATIENT
  Age: 31 Year
  Sex: Female

DRUGS (1)
  1. MIRENA [Suspect]
     Active Substance: LEVONORGESTREL
     Dosage: 20 MCG/24HR, CONT
     Route: 015
     Dates: start: 20120514, end: 20170616

REACTIONS (11)
  - Tinnitus [Unknown]
  - Musculoskeletal pain [Unknown]
  - Nausea [Unknown]
  - Vomiting [Unknown]
  - Headache [Unknown]
  - Neck pain [Unknown]
  - Back pain [Unknown]
  - Idiopathic intracranial hypertension [Unknown]
  - Dizziness [Unknown]
  - Vision blurred [Unknown]
  - Papilloedema [Unknown]

NARRATIVE: CASE EVENT DATE: 2015
